FAERS Safety Report 8908157 (Version 1)
Quarter: 2012Q4

REPORT INFORMATION
  Report Type: 
  Country: CA (occurrence: CA)
  Receive Date: 20121114
  Receipt Date: 20121114
  Transmission Date: 20130627
  Serious: Yes (Life-Threatening, Hospitalization)
  Sender: FDA-Public Use
  Company Number: CA-ASTRAZENECA-2012SE85937

PATIENT
  Age: 48 Year
  Sex: Male

DRUGS (4)
  1. SEROQUEL [Suspect]
     Route: 048
  2. SEROQUEL [Suspect]
     Route: 048
  3. PAROXETINE [Concomitant]
  4. TRAZODONE [Concomitant]

REACTIONS (2)
  - Suicide attempt [Unknown]
  - Psychotic disorder [Recovering/Resolving]
